FAERS Safety Report 9913331 (Version 1)
Quarter: 2014Q1

REPORT INFORMATION
  Report Type: Spontaneous
  Country: TR (occurrence: TR)
  Receive Date: 20140220
  Receipt Date: 20140220
  Transmission Date: 20141002
  Serious: Yes (Other)
  Sender: FDA-Public Use
  Company Number: TR-MYLANLABS-2014S1003066

PATIENT
  Age: 63 Year
  Sex: Female

DRUGS (3)
  1. WARFARIN [Suspect]
     Indication: ANTICOAGULANT THERAPY
     Dosage: 5 MG/DAY
     Route: 065
  2. GRAPEFRUIT EXTRACT [Interacting]
     Indication: ARTHRALGIA
     Dosage: BOSWELLIN/CITRUS PARADISI/GLUCOSAMINE 250MG
     Route: 048
  3. GLUCOSAMINE [Interacting]
     Route: 048

REACTIONS (5)
  - Toxicity to various agents [Recovered/Resolved]
  - International normalised ratio increased [Recovered/Resolved]
  - Haematuria [Recovered/Resolved]
  - Drug interaction [Recovered/Resolved]
  - Rash [Recovered/Resolved]
